FAERS Safety Report 7901634-X (Version None)
Quarter: 2011Q4

REPORT INFORMATION
  Report Type: 
  Country: None (occurrence: None)
  Receive Date: 20111108
  Receipt Date: 20111108
  Transmission Date: 20120403
  Serious: Yes (Life-Threatening, Hospitalization)
  Sender: FDA-Public Use
  Company Number: AU-ROCHE-748719

PATIENT
  Sex: Female
  Weight: 30.418 kg

DRUGS (2)
  1. PREDNISOLONE [Concomitant]
     Route: 048
     Dates: start: 20080101
  2. ACTEMRA [Suspect]
     Indication: RHEUMATOID ARTHRITIS
     Dosage: FORM: INFUSION; VOLUME OF INFUSION GIVEN: 21 ML/100ML
     Route: 042
     Dates: start: 20091101, end: 20101201

REACTIONS (1)
  - NECROTISING FASCIITIS [None]
